FAERS Safety Report 7332280-7 (Version None)
Quarter: 2011Q1

REPORT INFORMATION
  Report Type: 
  Country: None (occurrence: None)
  Receive Date: 20110304
  Receipt Date: 20110228
  Transmission Date: 20110831
  Serious: Yes (Life-Threatening, Other)
  Sender: FDA-Public Use
  Company Number: DE-JNJFOC-20110208200

PATIENT
  Age: 82 Year
  Sex: Female

DRUGS (17)
  1. RISPERDAL [Suspect]
     Route: 048
  2. NOVAMINSULFON [Concomitant]
     Route: 048
  3. HALDOL [Suspect]
     Indication: AGGRESSION
     Route: 030
     Dates: start: 20100107
  4. RISPERDAL [Suspect]
     Indication: AGGRESSION
     Route: 048
  5. DOMINAL [Suspect]
     Indication: AGGRESSION
     Route: 048
  6. LYRICA [Suspect]
     Indication: AGGRESSION
     Route: 048
     Dates: start: 20100107
  7. LYRICA [Suspect]
     Route: 048
     Dates: start: 20100107
  8. LYRICA [Suspect]
     Route: 048
     Dates: start: 20100107
  9. RISPERDAL [Suspect]
     Route: 048
  10. BISOPROLOL FUMARATE [Suspect]
     Indication: ILL-DEFINED DISORDER
     Route: 048
  11. BISOPROLOL FUMARATE [Suspect]
     Route: 048
  12. ASPIRIN [Concomitant]
     Route: 048
  13. HALDOL [Suspect]
     Route: 030
     Dates: start: 20100107
  14. LEVOTHYROXINE SODIUM [Concomitant]
     Route: 048
  15. RISPERDAL [Suspect]
     Route: 048
  16. DOMINAL [Suspect]
     Route: 048
  17. FOLATE [Concomitant]
     Route: 048

REACTIONS (3)
  - UNRESPONSIVE TO STIMULI [None]
  - DIZZINESS [None]
  - HYPOTENSION [None]
